FAERS Safety Report 24796150 (Version 3)
Quarter: 2025Q3

REPORT INFORMATION
  Report Type: Spontaneous
  Country: US (occurrence: US)
  Receive Date: 20250101
  Receipt Date: 20250826
  Transmission Date: 20251021
  Serious: Yes (Hospitalization)
  Sender: ROCHE
  Company Number: US-ROCHE-10000168577

PATIENT
  Age: 90 Year
  Sex: Female
  Weight: 55.34 kg

DRUGS (6)
  1. VABYSMO [Suspect]
     Active Substance: FARICIMAB-SVOA
     Indication: Neovascular age-related macular degeneration
     Dosage: EVERY 5 WEEKS IN RIGHT EYE
     Route: 050
  2. VABYSMO [Suspect]
     Active Substance: FARICIMAB-SVOA
     Dosage: EVERY 6 WEEKS IN LEFT EYE
     Route: 050
  3. VABYSMO [Suspect]
     Active Substance: FARICIMAB-SVOA
     Dosage: EVERY 4 WEEKS RIGHT EYE
     Route: 050
  4. ADVIL [Concomitant]
     Active Substance: IBUPROFEN
     Indication: Arthritis
     Dosage: MORNING, NOON AND EVENING, EACH TABLET IS 100MG, SHE TAKES 2 AT A?TIME
  5. MOTRIN [Concomitant]
     Active Substance: IBUPROFEN
     Indication: Arthralgia
     Route: 048
  6. ASPIRIN [Concomitant]
     Active Substance: ASPIRIN
     Dates: start: 20250818

REACTIONS (4)
  - Atrial fibrillation [Not Recovered/Not Resolved]
  - Off label use [Unknown]
  - Vertigo [Recovered/Resolved]
  - Fall [Unknown]

NARRATIVE: CASE EVENT DATE: 20241225
